FAERS Safety Report 6780449-2 (Version None)
Quarter: 2010Q2

REPORT INFORMATION
  Report Type: 
  Country: None (occurrence: None)
  Receive Date: 20100621
  Receipt Date: 20100616
  Transmission Date: 20101027
  Serious: Yes (Hospitalization)
  Sender: FDA-Public Use
  Company Number: US-BIOGENIDEC-2009BI040449

PATIENT
  Sex: Female
  Weight: 74 kg

DRUGS (12)
  1. TYSABRI [Suspect]
     Indication: MULTIPLE SCLEROSIS
     Route: 042
     Dates: start: 20061227
  2. TYSABRI [Suspect]
  3. NEURONTIN [Concomitant]
     Route: 048
     Dates: end: 20090101
  4. PERCOCET [Concomitant]
     Indication: PAIN
     Dates: end: 20090101
  5. PERCOCET [Concomitant]
     Dates: start: 20090101
  6. MOTRIN [Concomitant]
     Indication: PAIN
  7. SYNTHROID [Concomitant]
  8. TRAMADOL [Concomitant]
  9. LOPRESSOR [Concomitant]
     Route: 048
  10. FISH OIL [Concomitant]
  11. CALCIUM CARBONATE [Concomitant]
  12. GLYCOLAX [Concomitant]

REACTIONS (11)
  - BALANCE DISORDER [None]
  - EAR INFECTION [None]
  - ENDOMETRIOSIS [None]
  - FUNGAL INFECTION [None]
  - HERPES ZOSTER [None]
  - IMMUNE SYSTEM DISORDER [None]
  - MULTIPLE SCLEROSIS RELAPSE [None]
  - MUSCULAR WEAKNESS [None]
  - PANCREATITIS [None]
  - POST HERPETIC NEURALGIA [None]
  - URINARY TRACT INFECTION [None]
